FAERS Safety Report 9595314 (Version 1)
Quarter: 2013Q3

REPORT INFORMATION
  Report Type: Spontaneous
  Country: US (occurrence: None)
  Receive Date: 20130927
  Receipt Date: 20130927
  Transmission Date: 20140515
  Serious: Yes (Death)
  Sender: FDA-Public Use
  Company Number: CABO-13002820

PATIENT
  Age: 77 Year
  Sex: Male
  Weight: 51 kg

DRUGS (1)
  1. COMETRIQ (CABOZANTINIB) CAPSULE [Suspect]
     Route: 048
     Dates: start: 20130406, end: 20130601

REACTIONS (3)
  - Malignant neoplasm progression [None]
  - Decreased appetite [None]
  - Red blood cell count decreased [None]
